FAERS Safety Report 4428802-6 (Version None)
Quarter: 2004Q3

REPORT INFORMATION
  Report Type: 
  Country: None (occurrence: None)
  Receive Date: 20040813
  Receipt Date: 20040805
  Transmission Date: 20050211
  Serious: Yes (Death)
  Sender: FDA-Public Use
  Company Number: FRWYE950805AUG04

PATIENT
  Age: 53 Year
  Sex: Male

DRUGS (9)
  1. TAZOCILLINE (PIPERACILLIN / TAZOBACTAM, INJECTION) [Suspect]
     Indication: PERITONITIS
     Dosage: 4 G 2X PER 1 DAY; INTRAVENOUS
     Route: 042
     Dates: start: 20040607, end: 20040609
  2. TAZOCILLINE (PIPERACILLIN / TAZOBACTAM, INJECTION) [Suspect]
     Indication: SEPTIC SHOCK
     Dosage: 4 G 2X PER 1 DAY; INTRAVENOUS
     Route: 042
     Dates: start: 20040607, end: 20040609
  3. CORDARONE [Suspect]
     Dosage: INTRAVENOUS
     Route: 042
     Dates: start: 20040607
  4. HEPARIN SODIUM [Suspect]
     Dosage: 1000 UNIT 1X PER 1 DAY, INTRAVENOUS
     Route: 042
     Dates: start: 20040608, end: 20040614
  5. LOVENOX [Suspect]
     Dosage: 40 MG 1X PER 1 DAY, INTRAVENOUS
     Route: 042
     Dates: start: 20040616
  6. TIBERAL (ORNIDAZOLE, , 0) [Suspect]
     Indication: PERITONITIS
     Dosage: 2 G 1X PER 1 DAY, INTRAVENOUS
     Route: 042
     Dates: start: 20040607
  7. TIBERAL (ORNIDAZOLE, , 0) [Suspect]
     Indication: SEPTIC SHOCK
     Dosage: 2 G 1X PER 1 DAY, INTRAVENOUS
     Route: 042
     Dates: start: 20040607
  8. XIGRIS [Suspect]
     Indication: PERITONITIS
     Dosage: INTRAVENOUS
     Route: 042
     Dates: start: 20040608, end: 20040612
  9. XIGRIS [Suspect]
     Indication: SEPTIC SHOCK
     Dosage: INTRAVENOUS
     Route: 042
     Dates: start: 20040608, end: 20040612

REACTIONS (1)
  - CEREBRAL HAEMORRHAGE [None]
